FAERS Safety Report 8058353-1 (Version None)
Quarter: 2012Q1

REPORT INFORMATION
  Report Type: 
  Country: None (occurrence: None)
  Receive Date: 20120120
  Receipt Date: 20120110
  Transmission Date: 20120608
  Serious: Yes (Other)
  Sender: FDA-Public Use
  Company Number: NO-ELI_LILLY_AND_COMPANY-NO201201003614

PATIENT
  Age: 42 Year
  Sex: Female

DRUGS (2)
  1. ZYPREXA [Suspect]
     Indication: SCHIZOPHRENIA, PARANOID TYPE
     Dosage: 10 MG, UNKNOWN
     Dates: start: 20111103, end: 20111104
  2. PALIPERIDONE [Concomitant]
     Indication: SCHIZOPHRENIA, PARANOID TYPE
     Dosage: 150 MG, UNKNOWN
     Route: 030
     Dates: start: 20111102

REACTIONS (2)
  - NEUROLEPTIC MALIGNANT SYNDROME [None]
  - DEHYDRATION [None]
